FAERS Safety Report 9203951 (Version 1)
Quarter: 2013Q1

REPORT INFORMATION
  Report Type: Spontaneous
  Country: US (occurrence: None)
  Receive Date: 20120709
  Receipt Date: 20120709
  Transmission Date: 20140127
  Serious: No
  Sender: FDA-Public Use
  Company Number: 2012HGS-003436

PATIENT
  Age: 32 Year
  Sex: Female
  Weight: 53.52 kg

DRUGS (14)
  1. BENLYSTA [Suspect]
     Indication: SYSTEMIC LUPUS ERYTHEMATOSUS
     Dosage: 1 IN 28 D
     Route: 041
     Dates: start: 20120320
  2. METHOTREXATE (METHOTREXATE) (METHOTREXATE ) [Concomitant]
  3. PLAQUENIL HYDROXYCHLOROQUINE SULFATE) (HYDROXYCHLOROQUINE SULFATE) [Concomitant]
  4. THYROXIN (LEVOTHYROXINE SODIUM (LEVOTHYROXINE SODIUM) [Concomitant]
  5. XANAX (ALPRAZOLAM) (ALPRAZOLAM) [Concomitant]
  6. FOLIC ACID (FOLIC ACID) (FOLIC ACID) [Concomitant]
  7. ZOLOFT (SERTRALINE HYDROCHLORIDE) (SERTRALINE HYDROCHLORIDE) [Concomitant]
  8. VITAMIN C (ASCORBIC ACID) (ASCORBIC ACID) [Concomitant]
  9. MELATONIN (MELANTONIN) (MELANTONIN) [Concomitant]
  10. MULTIVITAMIN (VIGRAN) (ERGOCALCIFEROL, ASCORBIC ACID, PYROXIDINE HYDROCHLORIDE, THIAMINE HYDROCHLORIDE, RETINOL, RIBOFLAVIN, NICOTINAMIDE, CALCIUM PANTONTHENATE) [Concomitant]
  11. OXYBUTYNIN (OXYBUTYNIN) (OXYBUTYNIN) [Concomitant]
  12. VICOPROFEN (VICOPROFEN) (IBUPROFEN , HYDROCODONE BITARATE) [Concomitant]
  13. ADVIL (IBUPROFEN) (PARACETAMOL, HYDROCODONE BITARTRATE) [Concomitant]
  14. VICODIN (VICODIN) (PARACETAMOL, HYDROCODONE BITARTRATE) [Concomitant]

REACTIONS (5)
  - Cough [None]
  - Oropharyngeal pain [None]
  - Nausea [None]
  - Nasopharyngitis [None]
  - Myalgia [None]
